FAERS Safety Report 9782049 (Version 2)
Quarter: 2014Q2

REPORT INFORMATION
  Report Type: Report from Study
  Country: CA (occurrence: CA)
  Receive Date: 20131226
  Receipt Date: 20140425
  Transmission Date: 20141212
  Serious: Yes (Other)
  Sender: FDA-Public Use
  Company Number: CA-ROCHE-1324752

PATIENT
  Sex: Female
  Weight: 59.1 kg

DRUGS (7)
  1. RITUXAN [Suspect]
     Indication: RHEUMATOID ARTHRITIS
     Route: 042
     Dates: start: 20100409
  2. TYLENOL [Concomitant]
     Indication: PREMEDICATION
     Route: 048
     Dates: start: 20100409
  3. BENADRYL (CANADA) [Concomitant]
     Route: 048
     Dates: start: 20100409
  4. ARAVA [Concomitant]
  5. ELAVIL (CANADA) [Concomitant]
  6. PLAQUENIL [Concomitant]
  7. RANITIDINE [Concomitant]

REACTIONS (2)
  - Sciatica [Recovering/Resolving]
  - Weight decreased [Unknown]
